FAERS Safety Report 4309190-2 (Version None)
Quarter: 2004Q1

REPORT INFORMATION
  Report Type: 
  Country: None (occurrence: None)
  Receive Date: 20040227
  Receipt Date: 20040217
  Transmission Date: 20041129
  Serious: Yes (Hospitalization)
  Sender: FDA-Public Use
  Company Number: FR-JNJFOC-20040203522

PATIENT
  Age: 22 Year
  Sex: Male

DRUGS (1)
  1. SPORANOX [Suspect]
     Indication: CYSTIC FIBROSIS
     Dosage: ORAL
     Route: 048
     Dates: start: 20031001

REACTIONS (2)
  - PERICARDIAL EFFUSION [None]
  - PERICARDITIS [None]
